FAERS Safety Report 5166559-4 (Version None)
Quarter: 2006Q4

REPORT INFORMATION
  Report Type: 
  Country: None (occurrence: None)
  Receive Date: 20061130
  Receipt Date: 20061130
  Transmission Date: 20070319
  Serious: Yes (Life-Threatening, Hospitalization)
  Sender: FDA-Public Use
  Company Number: None

PATIENT
  Age: 22 Year
  Sex: Male

DRUGS (1)
  1. AFRIN [Suspect]
     Indication: RHINOPLASTY
     Dosage: 10 ML;NAS
     Route: 045

REACTIONS (6)
  - BRADYCARDIA [None]
  - HYPERTENSION [None]
  - MALAISE [None]
  - PROCEDURAL COMPLICATION [None]
  - SUPRAVENTRICULAR TACHYCARDIA [None]
  - WRONG DRUG ADMINISTERED [None]
